FAERS Safety Report 15364665 (Version 10)
Quarter: 2020Q1

REPORT INFORMATION
  Report Type: Spontaneous
  Country: CA (occurrence: CA)
  Receive Date: 20180910
  Receipt Date: 20200302
  Transmission Date: 20200409
  Serious: Yes (Other)
  Sender: FDA-Public Use
  Company Number: CA-COLGATE PALMOLIVE COMPANY-20180902047

PATIENT

DRUGS (26)
  1. DICLECTIN [Suspect]
     Active Substance: DOXYLAMINE SUCCINATE\PYRIDOXINE HYDROCHLORIDE
     Indication: TYPE 2 DIABETES MELLITUS
     Dosage: UNK
     Route: 065
  2. NIFEDIPINE. [Suspect]
     Active Substance: NIFEDIPINE
     Indication: HYPERTENSION
     Dosage: UNK
     Route: 064
  3. NIFEDIPINE. [Suspect]
     Active Substance: NIFEDIPINE
     Dosage: 20 MILLIGRAM
     Route: 064
  4. DICLECTIN [Suspect]
     Active Substance: DOXYLAMINE SUCCINATE\PYRIDOXINE HYDROCHLORIDE
     Indication: TYPE 2 DIABETES MELLITUS
  5. DICLECTIN [Suspect]
     Active Substance: DOXYLAMINE SUCCINATE\PYRIDOXINE HYDROCHLORIDE
     Indication: PROPHYLAXIS
     Dosage: UNK
     Route: 064
  6. NIFEDIPINE. [Suspect]
     Active Substance: NIFEDIPINE
     Dosage: UNK
     Route: 064
  7. SILDENAFIL. [Suspect]
     Active Substance: SILDENAFIL
     Dosage: 20 MILLIGRAM, FOUR TIMES/DAY
     Route: 048
  8. METFORMIN [Suspect]
     Active Substance: METFORMIN HYDROCHLORIDE
     Dosage: UNK
     Route: 064
  9. NIFEDIPINE. [Suspect]
     Active Substance: NIFEDIPINE
     Dosage: 60 MILLIGRAM, TWO TIMES A DAY
     Route: 064
  10. SILDENAFIL. [Suspect]
     Active Substance: SILDENAFIL
     Dosage: 20 MILLIGRAM, TWO TIMES A DAY
     Route: 065
  11. SILDENAFIL. [Suspect]
     Active Substance: SILDENAFIL
     Dosage: UNK
     Route: 064
  12. ERGOCALCIFEROL. [Suspect]
     Active Substance: ERGOCALCIFEROL
     Indication: PROPHYLAXIS
     Dosage: UNK
     Route: 065
  13. METFORMIN [Suspect]
     Active Substance: METFORMIN HYDROCHLORIDE
     Indication: TYPE 2 DIABETES MELLITUS
     Dosage: UNK
     Route: 065
  14. SILDENAFIL. [Suspect]
     Active Substance: SILDENAFIL
     Indication: FOETAL GROWTH RESTRICTION
     Dosage: 20 MILLIGRAM, 3 TIMES A DAY
     Route: 065
  15. INSULIN HUMAN [Suspect]
     Active Substance: INSULIN HUMAN
     Indication: TYPE 2 DIABETES MELLITUS
     Dosage: UNK
     Route: 064
  16. DICLECTIN [Suspect]
     Active Substance: DOXYLAMINE SUCCINATE\PYRIDOXINE HYDROCHLORIDE
     Indication: PROPHYLAXIS
     Route: 064
  17. CHLORHEXIDINE GLUCONATE UNSPECIFIED [Suspect]
     Active Substance: CHLORHEXIDINE GLUCONATE
     Indication: GINGIVAL HYPERTROPHY
     Dosage: UNK
     Route: 064
  18. ACETYLSALICYLIC ACID [Suspect]
     Active Substance: ASPIRIN
     Indication: PROPHYLAXIS
     Dosage: UNK
     Route: 064
  19. NIFEDIPINE. [Suspect]
     Active Substance: NIFEDIPINE
     Dosage: 20 MILLIGRAM, 3 TIMES A DAY
     Route: 023
  20. SILDENAFIL. [Suspect]
     Active Substance: SILDENAFIL
     Dosage: 20 MILLIGRAM
     Route: 064
  21. METHYLDOPA. [Suspect]
     Active Substance: METHYLDOPA
     Indication: HYPERTENSION
     Dosage: UNK
     Route: 064
  22. NIFEDIPINE. [Suspect]
     Active Substance: NIFEDIPINE
     Dosage: 20 MILLIGRAM, ONCE A DAY
     Route: 065
  23. PERIOGARD [Suspect]
     Active Substance: CHLORHEXIDINE GLUCONATE
     Indication: GINGIVAL HYPERTROPHY
     Dosage: UNK
     Route: 064
  24. INSULIN [Suspect]
     Active Substance: INSULIN NOS
     Indication: TYPE 2 DIABETES MELLITUS
     Dosage: UNK
     Route: 064
  25. NIFEDIPINE. [Suspect]
     Active Substance: NIFEDIPINE
     Dosage: 20 MILLIGRAM, TWO TIMES A DAY
     Route: 065
  26. APO SILDENAFIL [Suspect]
     Active Substance: SILDENAFIL CITRATE
     Indication: FOETAL GROWTH RESTRICTION
     Dosage: UNK
     Route: 064

REACTIONS (2)
  - Maternal exposure during pregnancy [Unknown]
  - Premature delivery [Unknown]
